FAERS Safety Report 23338444 (Version 1)
Quarter: 2023Q4

REPORT INFORMATION
  Report Type: Spontaneous
  Country: US (occurrence: None)
  Receive Date: 20231222
  Receipt Date: 20231222
  Transmission Date: 20240110
  Serious: Yes (Other)
  Sender: FDA-Public Use
  Company Number: None

PATIENT
  Age: 73 Year
  Sex: Female

DRUGS (1)
  1. PIRFENIDONE [Suspect]
     Active Substance: PIRFENIDONE
     Indication: Hypersensitivity pneumonitis
     Dosage: FREQUENCY : 3 TIMES A DAY;?
     Route: 048
     Dates: start: 20231026, end: 20231130

REACTIONS (1)
  - Skin reaction [None]

NARRATIVE: CASE EVENT DATE: 20231222
